FAERS Safety Report 5444323-6 (Version None)
Quarter: 2007Q3

REPORT INFORMATION
  Report Type: 
  Country: None (occurrence: None)
  Receive Date: 20070906
  Receipt Date: 20070904
  Transmission Date: 20080115
  Serious: Yes (Other)
  Sender: FDA-Public Use
  Company Number: JP-BRISTOL-MYERS SQUIBB COMPANY-13897426

PATIENT
  Age: 23 Year
  Sex: Male

DRUGS (4)
  1. DOXORUBICIN HCL [Suspect]
     Indication: BONE SARCOMA
     Dosage: ALSO RECEIVED 2 INTRAVENOUS CYCLES POSTOPERATIVELY.
     Route: 013
  2. IFOSFAMIDE [Suspect]
     Indication: BONE SARCOMA
     Dosage: DOSAGE FORM EQUALS G/M2
  3. METHOTREXATE [Suspect]
     Indication: BONE SARCOMA
     Dosage: DOSAGE FORM EQUALS G/M2
  4. CISPLATIN [Suspect]
     Indication: BONE SARCOMA
     Dosage: ALSO RECEIVED 2 INTRAVENOUS CYCLES POSTOPERATIVELY.
     Route: 013

REACTIONS (1)
  - SYNOVIAL SARCOMA [None]
